FAERS Safety Report 11816209 (Version 1)
Quarter: 2015Q4

REPORT INFORMATION
  Report Type: Spontaneous
  Country: US (occurrence: US)
  Receive Date: 20151209
  Receipt Date: 20151209
  Transmission Date: 20160305
  Serious: Yes (Other)
  Sender: FDA-Public Use
  Company Number: US-ALLERGAN-1525937US

PATIENT
  Age: 50 Year
  Sex: Male

DRUGS (2)
  1. CEFADROXIL. [Concomitant]
     Active Substance: CEFADROXIL
     Indication: IMMUNE SYSTEM DISORDER
  2. OZURDEX [Suspect]
     Active Substance: DEXAMETHASONE
     Indication: CHOROIDITIS
     Dosage: 0.7 MG, SINGLE
     Route: 031

REACTIONS (3)
  - Off label use [Unknown]
  - Blindness transient [Recovered/Resolved]
  - Cataract [Recovered/Resolved]
